FAERS Safety Report 4914781-1 (Version None)
Quarter: 2006Q1

REPORT INFORMATION
  Report Type: 
  Country: None (occurrence: None)
  Receive Date: 20060113
  Receipt Date: 20051020
  Transmission Date: 20060701
  Serious: No
  Sender: FDA-Public Use
  Company Number: 2005SP003604

PATIENT
  Age: 54 Year
  Sex: Female
  Weight: 58.0604 kg

DRUGS (2)
  1. LUNESTA [Suspect]
     Indication: CHRONIC FATIGUE SYNDROME
     Dosage: 1 MG; HS; ORAL
     Route: 048
     Dates: start: 20050101, end: 20050101
  2. LUNESTA [Suspect]
     Indication: SLEEP DISORDER
     Dosage: 1 MG; HS; ORAL
     Route: 048
     Dates: start: 20050101, end: 20050101

REACTIONS (1)
  - INITIAL INSOMNIA [None]
